FAERS Safety Report 4316946-9 (Version None)
Quarter: 2004Q1

REPORT INFORMATION
  Report Type: 
  Country: None (occurrence: None)
  Receive Date: 20040312
  Receipt Date: 20040227
  Transmission Date: 20041129
  Serious: Yes (Congenital Anomaly)
  Sender: FDA-Public Use
  Company Number: 204959

PATIENT
  Sex: Male
  Weight: 2.7 kg

DRUGS (2)
  1. HERCEPTIN [Suspect]
     Indication: DRUG EXPOSURE DURING PREGNANCY
     Dosage: INTRAVENOUS
     Route: 042
     Dates: end: 20030701
  2. HERCEPTIN [Suspect]
     Indication: DRUG EXPOSURE DURING PREGNANCY
     Dosage: INTRAVENOUS
     Route: 042
     Dates: start: 20030825, end: 20031202

REACTIONS (5)
  - MATERNAL DRUGS AFFECTING FOETUS [None]
  - OLIGOHYDRAMNIOS [None]
  - PLACENTAL DISORDER [None]
  - PREMATURE BABY [None]
  - TRISOMY 21 [None]
